FAERS Safety Report 9949767 (Version 1)
Quarter: 2014Q1

REPORT INFORMATION
  Report Type: Report from Study
  Country: US (occurrence: US)
  Receive Date: 20140304
  Receipt Date: 20140304
  Transmission Date: 20141002
  Serious: No
  Sender: FDA-Public Use
  Company Number: US-ABBVIE-13P-163-1069511-00

PATIENT
  Age: 60 Year
  Sex: Female

DRUGS (8)
  1. HUMIRA [Suspect]
     Indication: COLITIS ULCERATIVE
     Dates: start: 20121215, end: 20121216
  2. HUMIRA [Suspect]
     Dosage: ONE-TIME DOSE
     Route: 058
     Dates: start: 20121228, end: 20121228
  3. HUMIRA [Suspect]
     Route: 058
     Dates: start: 20130114
  4. 6-MERCAPTOPURINE [Concomitant]
     Indication: COLITIS ULCERATIVE
  5. JANTOVEN [Concomitant]
     Indication: THROMBOSIS PROPHYLAXIS
     Dates: start: 201211
  6. CALCIUM [Concomitant]
     Indication: OSTEOPOROSIS PROPHYLAXIS
  7. MULTIVITAMINS [Concomitant]
     Indication: ROUTINE HEALTH MAINTENANCE
  8. IRON [Concomitant]
     Indication: IRON DEFICIENCY
     Dates: start: 201211

REACTIONS (1)
  - Precancerous skin lesion [Recovering/Resolving]
